FAERS Safety Report 15810906 (Version 1)
Quarter: 2019Q1

REPORT INFORMATION
  Report Type: Spontaneous
  Country: US (occurrence: US)
  Receive Date: 20190111
  Receipt Date: 20190111
  Transmission Date: 20190417
  Serious: No
  Sender: FDA-Public Use
  Company Number: US-ASTRAZENECA-2019SE05143

PATIENT
  Age: 64 Year
  Sex: Female
  Weight: 80.7 kg

DRUGS (4)
  1. NEXIUM 24HR [Suspect]
     Active Substance: ESOMEPRAZOLE MAGNESIUM
     Indication: GASTROOESOPHAGEAL REFLUX DISEASE
     Dosage: 40 MG, 1X/DAY (20MG CAPSULES, TWO CAPSULE ONCE A DAY )
     Route: 048
  2. NEXIUM 24HR [Suspect]
     Active Substance: ESOMEPRAZOLE MAGNESIUM
     Indication: DYSPEPSIA
     Dosage: 40 MG, 1X/DAY (20MG CAPSULES, TWO CAPSULE ONCE A DAY )
     Route: 048
  3. NEXIUM 24HR [Suspect]
     Active Substance: ESOMEPRAZOLE MAGNESIUM
     Indication: GASTROOESOPHAGEAL REFLUX DISEASE
     Dosage: CLEARMINIS, 40 MG, 1X/DAY (20MG TWO CLEAR MINIS ONCE A DAY BY MOUTH)
     Route: 048
     Dates: start: 201810, end: 201811
  4. NEXIUM 24HR [Suspect]
     Active Substance: ESOMEPRAZOLE MAGNESIUM
     Indication: DYSPEPSIA
     Dosage: CLEARMINIS, 40 MG, 1X/DAY (20MG TWO CLEAR MINIS ONCE A DAY BY MOUTH)
     Route: 048
     Dates: start: 201810, end: 201811

REACTIONS (4)
  - Gastric disorder [Recovering/Resolving]
  - Intentional product misuse [Not Recovered/Not Resolved]
  - Condition aggravated [Recovering/Resolving]
  - Drug ineffective [Recovering/Resolving]

NARRATIVE: CASE EVENT DATE: 201810
